FAERS Safety Report 22319107 (Version 2)
Quarter: 2023Q2

REPORT INFORMATION
  Report Type: Report from Study
  Country: US (occurrence: US)
  Receive Date: 20230515
  Receipt Date: 20230518
  Transmission Date: 20230721
  Serious: No
  Sender: FDA-Public Use
  Company Number: US-002147023-NVSC2023US107241

PATIENT
  Sex: Female

DRUGS (1)
  1. MAYZENT [Suspect]
     Active Substance: SIPONIMOD
     Indication: Product used for unknown indication
     Dosage: 2 MG, OTHER, (FOUR TIMES PER WEEK - EVERY SUN, TUE, THU AND SAT)
     Route: 048

REACTIONS (2)
  - Dysgraphia [Unknown]
  - Inappropriate schedule of product administration [Unknown]
